FAERS Safety Report 4721692-3 (Version None)
Quarter: 2005Q3

REPORT INFORMATION
  Report Type: 
  Country: None (occurrence: None)
  Receive Date: 20050721
  Receipt Date: 20050301
  Transmission Date: 20060218
  Serious: Yes (Hospitalization)
  Sender: FDA-Public Use
  Company Number: US-BRISTOL-MYERS SQUIBB COMPANY-12880589

PATIENT
  Age: 62 Year
  Sex: Male
  Weight: 127 kg

DRUGS (9)
  1. COUMADIN [Suspect]
     Indication: THROMBOPHLEBITIS SUPERFICIAL
     Dates: start: 20040726
  2. LOVENOX [Suspect]
     Route: 058
     Dates: start: 20040726, end: 20040730
  3. WELLBUTRIN XL [Concomitant]
  4. METOPROLOL [Concomitant]
  5. TRICOR [Concomitant]
  6. DIOVAN [Concomitant]
  7. MULTI-VITAMIN [Concomitant]
  8. GLUCOSAMINE [Concomitant]
  9. ASCORBIC ACID [Concomitant]

REACTIONS (2)
  - DEEP VEIN THROMBOSIS [None]
  - PULMONARY EMBOLISM [None]
